FAERS Safety Report 4376856-8 (Version None)
Quarter: 2004Q2

REPORT INFORMATION
  Report Type: 
  Country: None (occurrence: None)
  Receive Date: 20040609
  Receipt Date: 20040406
  Transmission Date: 20050107
  Serious: Yes (Hospitalization, Other)
  Sender: FDA-Public Use
  Company Number: US-SHR-03-004237

PATIENT
  Age: 50 Year
  Sex: Female
  Weight: 64.4 kg

DRUGS (5)
  1. YASMIN [Suspect]
     Indication: UTERINE LEIOMYOMA
     Dosage: 1 TAB, 1X/DAY, ORAL
     Route: 048
  2. LIPITOR [Concomitant]
  3. SYNTHROID [Concomitant]
  4. PRILOSEC [Concomitant]
  5. CELEXA [Concomitant]

REACTIONS (4)
  - DEEP VEIN THROMBOSIS [None]
  - PALLOR [None]
  - PARAESTHESIA [None]
  - PERIPHERAL COLDNESS [None]
